FAERS Safety Report 7012450-8 (Version None)
Quarter: 2010Q3

REPORT INFORMATION
  Report Type: 
  Country: None (occurrence: None)
  Receive Date: 20100924
  Receipt Date: 20100917
  Transmission Date: 20110219
  Serious: Yes (Death, Other)
  Sender: FDA-Public Use
  Company Number: US-JNJFOC-20100906967

PATIENT
  Age: 55 Year
  Sex: Male

DRUGS (2)
  1. REOPRO [Suspect]
     Indication: PERCUTANEOUS CORONARY INTERVENTION
     Route: 042
  2. REOPRO [Suspect]
     Route: 042

REACTIONS (2)
  - DEATH [None]
  - PULMONARY HAEMORRHAGE [None]
